FAERS Safety Report 25679006 (Version 1)
Quarter: 2025Q3

REPORT INFORMATION
  Report Type: Spontaneous
  Country: EU (occurrence: EU)
  Receive Date: 20250814
  Receipt Date: 20250814
  Transmission Date: 20251021
  Serious: Yes (Death, Congenital Anomaly, Other)
  Sender: ELI LILLY AND COMPANY
  Company Number: None

PATIENT

DRUGS (2)
  1. MOUNJARO [Suspect]
     Active Substance: TIRZEPATIDE
     Indication: Weight control
     Dosage: 1 DOSAGE FORM, WEEKLY (1/W)
     Dates: start: 202502
  2. MOUNJARO [Suspect]
     Active Substance: TIRZEPATIDE
     Indication: Weight control
     Dosage: 1 DOSAGE FORM, WEEKLY (1/W)
     Dates: start: 202502

REACTIONS (4)
  - Stillbirth [Fatal]
  - Congenital musculoskeletal disorder of limbs [Fatal]
  - Foetal chromosome abnormality [Not Recovered/Not Resolved]
  - Foetal exposure via father [Unknown]

NARRATIVE: CASE EVENT DATE: 20250201
